FAERS Safety Report 4810375-7 (Version None)
Quarter: 2005Q4

REPORT INFORMATION
  Report Type: 
  Country: None (occurrence: None)
  Receive Date: 20051024
  Receipt Date: 20051018
  Transmission Date: 20060501
  Serious: Yes (Hospitalization)
  Sender: FDA-Public Use
  Company Number: STA-AE-05-027

PATIENT
  Age: 63 Year
  Sex: Female

DRUGS (3)
  1. SULFASALAZINE [Suspect]
  2. PREDNISONE [Concomitant]
  3. AMOXICILLIN [Concomitant]

REACTIONS (15)
  - ASTHENIA [None]
  - BRONCHITIS [None]
  - CARDIOGENIC SHOCK [None]
  - DRUG ERUPTION [None]
  - DRUG HYPERSENSITIVITY [None]
  - GENERAL PHYSICAL HEALTH DETERIORATION [None]
  - HEPATOSPLENOMEGALY [None]
  - LYMPHADENOPATHY [None]
  - MYALGIA [None]
  - PRURITUS [None]
  - PYREXIA [None]
  - RASH MACULO-PAPULAR [None]
  - RHINITIS [None]
  - SKIN LESION [None]
  - VIRAL INFECTION [None]
